FAERS Safety Report 9026293 (Version 2)
Quarter: 2013Q1

REPORT INFORMATION
  Report Type: Spontaneous
  Country: IT (occurrence: None)
  Receive Date: 20121211
  Receipt Date: 20121227
  Transmission Date: 20140127
  Serious: Yes (Hospitalization)
  Sender: FDA-Public Use
  Company Number: AUR-APL-2012-05227

PATIENT
  Age: 39 Year
  Sex: Female

DRUGS (5)
  1. METFORMIN (METFORMIN) [Suspect]
     Indication: PRODUCT USED FOR UNKNOWN INDICATION
     Route: 048
     Dates: start: 20121011, end: 20121011
  2. SERTRALINE (SERTRALINE) (SERTRALINE) [Suspect]
     Indication: SUICIDE ATTEMPT
     Route: 048
     Dates: start: 20121011, end: 20121011
  3. LORAZEPAM (LORAZEPAM) [Suspect]
     Indication: SUICIDE ATTEMPT
     Route: 048
     Dates: start: 20121011, end: 20121011
  4. DICLOFENAC [Suspect]
     Indication: PRODUCT USED FOR UNKNOWN INDICATION
     Route: 042
     Dates: start: 20121011, end: 20121011
  5. PANTOPRAZOLE (PANTOPRAZOLE) [Suspect]
     Indication: PRODUCT USED FOR UNKNOWN INDICATION
     Route: 048
     Dates: start: 20121011, end: 20121011

REACTIONS (4)
  - Suicide attempt [None]
  - Drug abuse [None]
  - Toxicity to various agents [None]
  - Intentional overdose [None]
